FAERS Safety Report 9583933 (Version 1)
Quarter: 2013Q4

REPORT INFORMATION
  Report Type: Spontaneous
  Country: US (occurrence: US)
  Receive Date: 20131002
  Receipt Date: 20131002
  Transmission Date: 20140711
  Serious: No
  Sender: FDA-Public Use
  Company Number: US-AMGEN-USASP2013050707

PATIENT
  Age: 51 Year
  Sex: Female
  Weight: 74.83 kg

DRUGS (8)
  1. ENBREL [Suspect]
     Indication: PSORIASIS
     Dosage: UNK, EVERY OTHER WEEK
     Route: 065
  2. ADVAIR [Concomitant]
     Dosage: UNK
  3. ASPIRIN [Concomitant]
     Dosage: UNK
  4. CALCIUM [Concomitant]
     Dosage: UNK
  5. LIPITOR [Concomitant]
     Dosage: UNK
  6. OMEGA 3                            /01334101/ [Concomitant]
     Dosage: UNK
  7. PROVENTIL                          /00139501/ [Concomitant]
     Dosage: UNK
  8. STELARA [Concomitant]
     Dosage: UNK

REACTIONS (2)
  - Treatment failure [Unknown]
  - Psoriasis [Unknown]
